FAERS Safety Report 23710207 (Version 2)
Quarter: 2024Q2

REPORT INFORMATION
  Report Type: Report from Study
  Country: CO (occurrence: CO)
  Receive Date: 20240405
  Receipt Date: 20240426
  Transmission Date: 20240716
  Serious: Yes (Hospitalization, Other)
  Sender: FDA-Public Use
  Company Number: CO-ABBVIE-5705504

PATIENT
  Age: 54 Year
  Sex: Male
  Weight: 88 kg

DRUGS (1)
  1. SKYRIZI [Suspect]
     Active Substance: RISANKIZUMAB-RZAA
     Indication: Psoriasis
     Dosage: FORM STRENGTH: 150 MG
     Route: 058
     Dates: start: 20230926, end: 20231101

REACTIONS (3)
  - Cerebral thrombosis [Unknown]
  - Headache [Recovering/Resolving]
  - Subdural haematoma [Recovering/Resolving]

NARRATIVE: CASE EVENT DATE: 20230301
